FAERS Safety Report 4613459-1 (Version None)
Quarter: 2005Q1

REPORT INFORMATION
  Report Type: 
  Country: None (occurrence: None)
  Receive Date: 20050317
  Receipt Date: 20050317
  Transmission Date: 20050727
  Serious: Yes (Hospitalization)
  Sender: FDA-Public Use
  Company Number: None

PATIENT
  Age: 67 Year
  Sex: Male

DRUGS (11)
  1. AMIODARONE HCL [Suspect]
     Indication: CARDIOVERSION
     Dosage: 400 MG PO TID
     Route: 048
     Dates: start: 20041106, end: 20041108
  2. AMIODARONE HCL [Suspect]
     Indication: LOSS OF CONSCIOUSNESS
     Dosage: 400 MG PO TID
     Route: 048
     Dates: start: 20041106, end: 20041108
  3. ASPIRIN [Concomitant]
  4. FUROSEMIDE [Concomitant]
  5. HEPARIN [Concomitant]
  6. INSULIN REGULAR-HUMAN- INJ [Concomitant]
  7. LISINOPRIL [Concomitant]
  8. METOPROLOL TARTRATE [Concomitant]
  9. NITROGLYCERIN 2% [Concomitant]
  10. OMEPRAZOLE [Concomitant]
  11. SIMVASTATIN [Concomitant]

REACTIONS (1)
  - TORSADE DE POINTES [None]
